FAERS Safety Report 11911154 (Version 1)
Quarter: 2016Q1

REPORT INFORMATION
  Report Type: Spontaneous
  Country: US (occurrence: US)
  Receive Date: 20160112
  Receipt Date: 20160112
  Transmission Date: 20160526
  Serious: No
  Sender: FDA-Public Use
  Company Number: US-TARO-2015TAR00640

PATIENT
  Age: 49 Year
  Sex: Female
  Weight: 63.49 kg

DRUGS (1)
  1. KETOCONAZOLE CREAM 2% [Suspect]
     Active Substance: KETOCONAZOLE
     Indication: SEBORRHOEIC DERMATITIS
     Dosage: LESS THAN A PEA-SIZE OF THE PRODUCT TWICE A DAY
     Route: 061
     Dates: start: 20150704, end: 20150706

REACTIONS (1)
  - Seborrhoeic dermatitis [Not Recovered/Not Resolved]

NARRATIVE: CASE EVENT DATE: 201507
